FAERS Safety Report 24072060 (Version 1)
Quarter: 2024Q3

REPORT INFORMATION
  Report Type: Spontaneous
  Country: AU (occurrence: AU)
  Receive Date: 20240710
  Receipt Date: 20240710
  Transmission Date: 20241017
  Serious: Yes (Life-Threatening, Other)
  Sender: GLAXOSMITHKLINE
  Company Number: AU-GSKCCFAPAC-Case-02012354_AE-84896

PATIENT

DRUGS (2)
  1. BACTROBAN [Suspect]
     Active Substance: MUPIROCIN CALCIUM
     Indication: Staphylococcal infection
     Dosage: UNK
  2. BACTROBAN [Suspect]
     Active Substance: MUPIROCIN CALCIUM
     Indication: Staphylococcal infection
     Dosage: UNK

REACTIONS (4)
  - Thrombosis [Unknown]
  - Application site pain [Unknown]
  - Product use in unapproved indication [Unknown]
  - Product prescribing issue [Unknown]
